FAERS Safety Report 5727957-0 (Version None)
Quarter: 2008Q2

REPORT INFORMATION
  Report Type: 
  Country: None (occurrence: None)
  Receive Date: 20080505
  Receipt Date: 20080423
  Transmission Date: 20081010
  Serious: Yes (Disabling, Other)
  Sender: FDA-Public Use
  Company Number: US-PFIZER INC-2008036257

PATIENT
  Sex: Female

DRUGS (2)
  1. LYRICA [Suspect]
  2. SEROQUEL [Suspect]

REACTIONS (9)
  - ANXIETY [None]
  - DIABETES MELLITUS [None]
  - DISABILITY [None]
  - HOMICIDE [None]
  - INSOMNIA [None]
  - POST-TRAUMATIC STRESS DISORDER [None]
  - SOMNOLENCE [None]
  - WEIGHT INCREASED [None]
  - WHEELCHAIR USER [None]
